FAERS Safety Report 6386443-8 (Version None)
Quarter: 2009Q4

REPORT INFORMATION
  Report Type: 
  Country: None (occurrence: None)
  Receive Date: 20091002
  Receipt Date: 20090604
  Transmission Date: 20100525
  Serious: No
  Sender: FDA-Public Use
  Company Number: US-ASTRAZENECA-2009UW11489

PATIENT
  Age: 61 Year
  Sex: Female

DRUGS (1)
  1. ARIMIDEX [Suspect]
     Indication: BREAST CANCER
     Route: 048
     Dates: start: 20081201

REACTIONS (7)
  - ALOPECIA [None]
  - HAIR TEXTURE ABNORMAL [None]
  - HOT FLUSH [None]
  - INCREASED APPETITE [None]
  - LOCAL SWELLING [None]
  - OROPHARYNGEAL PAIN [None]
  - TRICHORRHEXIS [None]
